FAERS Safety Report 16336636 (Version 1)
Quarter: 2019Q2

REPORT INFORMATION
  Report Type: Spontaneous
  Country: ES (occurrence: ES)
  Receive Date: 20190521
  Receipt Date: 20190521
  Transmission Date: 20190711
  Serious: Yes (Death, Hospitalization)
  Sender: FDA-Public Use
  Company Number: ES-ACCORD-128302

PATIENT
  Age: 83 Year
  Sex: Male

DRUGS (4)
  1. CLOPIDOGREL [Suspect]
     Active Substance: CLOPIDOGREL BISULFATE
     Indication: MYOCARDIAL INFARCTION
     Route: 048
     Dates: start: 20181107, end: 20181115
  2. ACETYLSALICYLIC ACID [Interacting]
     Active Substance: ASPIRIN
     Indication: PROPHYLAXIS
     Route: 048
     Dates: start: 2006, end: 20181115
  3. ENOXAPARIN [Interacting]
     Active Substance: ENOXAPARIN
     Indication: MYOCARDIAL INFARCTION
     Route: 058
     Dates: start: 20181109, end: 20181114
  4. HEPARIN [Concomitant]
     Active Substance: HEPARIN SODIUM
     Indication: MYOCARDIAL INFARCTION
     Route: 042
     Dates: start: 20181107, end: 20181109

REACTIONS (2)
  - Upper gastrointestinal haemorrhage [Fatal]
  - Drug interaction [Unknown]

NARRATIVE: CASE EVENT DATE: 20181113
